FAERS Safety Report 9182490 (Version 1)
Quarter: 2012Q4

REPORT INFORMATION
  Report Type: 
  Country: US (occurrence: US)
  Receive Date: 20121031
  Receipt Date: 20121031
  Transmission Date: 20130627
  Serious: No
  Sender: FDA-Public Use
  Company Number: US-BAYER-2012-113438

PATIENT
  Age: 54 Year
  Sex: Male

DRUGS (5)
  1. LEVITRA [Suspect]
     Indication: ERECTILE DYSFUNCTION
     Dosage: 20 mg, PRN
     Route: 048
     Dates: start: 20121009, end: 20121010
  2. LOTENSIN HCT [Concomitant]
     Dosage: 20/12.5 mg, QD
  3. BYSTOLIC [Concomitant]
     Dosage: 10 mg, QD
  4. NORVASC [Concomitant]
     Dosage: 5 mg, QD
  5. SIMVASTATIN [Concomitant]
     Dosage: 20 mg, QD

REACTIONS (1)
  - Erectile dysfunction [Unknown]
